FAERS Safety Report 15407327 (Version 1)
Quarter: 2018Q3

REPORT INFORMATION
  Report Type: Spontaneous
  Country: NL (occurrence: NL)
  Receive Date: 20180920
  Receipt Date: 20180920
  Transmission Date: 20181010
  Serious: Yes (Hospitalization)
  Sender: FDA-Public Use
  Company Number: NL-PFIZER INC-2018375560

PATIENT
  Age: 73 Year
  Sex: Male

DRUGS (6)
  1. CAPECITABINE. [Suspect]
     Active Substance: CAPECITABINE
     Indication: COLORECTAL CANCER METASTATIC
     Dosage: UNTIL CYCLE 5
     Route: 065
     Dates: start: 20180103
  2. BEVACIZUMAB. [Suspect]
     Active Substance: BEVACIZUMAB
     Dosage: CYCLE 5
     Route: 065
     Dates: start: 20180410
  3. BEVACIZUMAB. [Suspect]
     Active Substance: BEVACIZUMAB
     Indication: COLORECTAL CANCER METASTATIC
     Dosage: UNTIL CYCLE 5
     Route: 065
     Dates: start: 20180103
  4. CAPECITABINE. [Suspect]
     Active Substance: CAPECITABINE
     Dosage: CYCLE 5
     Route: 065
     Dates: start: 20180410
  5. OXALIPLATIN. [Suspect]
     Active Substance: OXALIPLATIN
     Indication: COLORECTAL CANCER METASTATIC
     Dosage: UNTIL CYCLE 5
     Route: 065
     Dates: start: 20180103
  6. CAPECITABINE. [Suspect]
     Active Substance: CAPECITABINE
     Dosage: MONOTHERAPY
     Route: 065
     Dates: start: 20180501

REACTIONS (2)
  - Urinary tract infection [Recovered/Resolved]
  - Wound infection [Recovered/Resolved]

NARRATIVE: CASE EVENT DATE: 20180726
